FAERS Safety Report 6654010-4 (Version None)
Quarter: 2010Q1

REPORT INFORMATION
  Report Type: 
  Country: None (occurrence: None)
  Receive Date: 20100324
  Receipt Date: 20100309
  Transmission Date: 20100710
  Serious: Yes (Death, Hospitalization)
  Sender: FDA-Public Use
  Company Number: 2009001778

PATIENT
  Age: 69 Year
  Sex: Female

DRUGS (7)
  1. ERLOTINIB (ERLOTINIB) (TABLET) (ERLOTINIB) [Suspect]
     Indication: PANCREATIC CARCINOMA METASTATIC
     Dosage: (50 MG,QD),ORAL
     Route: 048
     Dates: start: 20090212, end: 20090507
  2. GEMCITABINE [Suspect]
     Indication: PANCREATIC CARCINOMA METASTATIC
     Dosage: (1460 MG,Q1W),INTRAVENOUS
     Route: 042
     Dates: start: 20090212, end: 20090507
  3. OMEPRAZOLE [Concomitant]
  4. NAPROXEN SODIUM [Concomitant]
  5. NEUROBION (NEUROBION FOR INJECTION) [Concomitant]
  6. NORTRIPTYLINE HCL [Concomitant]
  7. Q.V. SKIN LOTION [Concomitant]

REACTIONS (3)
  - INTERSTITIAL LUNG DISEASE [None]
  - PNEUMOCYSTIS JIROVECI PNEUMONIA [None]
  - PNEUMOTHORAX [None]
